FAERS Safety Report 6059282-5 (Version None)
Quarter: 2009Q1

REPORT INFORMATION
  Report Type: 
  Country: None (occurrence: None)
  Receive Date: 20090128
  Receipt Date: 20090128
  Transmission Date: 20090719
  Serious: Yes (Other)
  Sender: FDA-Public Use
  Company Number: None

PATIENT
  Sex: Female
  Weight: 70.3075 kg

DRUGS (2)
  1. CYMBALTA [Suspect]
     Indication: FIBROMYALGIA
     Dosage: 60 MG. ONCE A DAY PO
     Route: 048
     Dates: start: 20080901, end: 20090126
  2. CYMBALTA [Suspect]
     Dosage: 30 MG. ONCE A DAY PO
     Route: 048

REACTIONS (10)
  - ABDOMINAL PAIN UPPER [None]
  - ANGER [None]
  - DIPLOPIA [None]
  - DIZZINESS [None]
  - DRUG WITHDRAWAL SYNDROME [None]
  - HALLUCINATION, AUDITORY [None]
  - IMPAIRED DRIVING ABILITY [None]
  - NAUSEA [None]
  - VOMITING [None]
  - WEIGHT INCREASED [None]
